FAERS Safety Report 19643561 (Version 1)
Quarter: 2021Q3

REPORT INFORMATION
  Report Type: Report from Study
  Country: US (occurrence: US)
  Receive Date: 20210730
  Receipt Date: 20210730
  Transmission Date: 20211014
  Serious: No
  Sender: FDA-Public Use
  Company Number: NVSC2021US168092

PATIENT
  Age: 54 Year
  Sex: Male

DRUGS (1)
  1. ENTRESTO [Suspect]
     Active Substance: SACUBITRIL\VALSARTAN
     Indication: CARDIAC FAILURE
     Dosage: 1 DF, BID(49.51 MG)
     Route: 048
     Dates: start: 2019

REACTIONS (2)
  - Abdominal discomfort [Unknown]
  - Injury [Unknown]

NARRATIVE: CASE EVENT DATE: 20210722
